FAERS Safety Report 9928335 (Version 4)
Quarter: 2014Q1

REPORT INFORMATION
  Report Type: Spontaneous
  Country: DE (occurrence: DE)
  Receive Date: 20140227
  Receipt Date: 20140321
  Transmission Date: 20141002
  Serious: Yes (Hospitalization)
  Sender: FDA-Public Use
  Company Number: DE-JNJFOC-20140214750

PATIENT
  Age: 50 Year
  Sex: Male
  Weight: 110 kg

DRUGS (5)
  1. REMICADE [Suspect]
     Indication: PSORIATIC ARTHROPATHY
     Dosage: THE PATIENT HAD APPROXIMATELY RECEIVED A TOTAL OF 38 INFLIXIMAB INFUSIONS.
     Route: 042
     Dates: start: 20080218, end: 20140121
  2. REMICADE [Suspect]
     Indication: ANKYLOSING SPONDYLITIS
     Dosage: THE PATIENT HAD APPROXIMATELY RECEIVED A TOTAL OF 38 INFLIXIMAB INFUSIONS.
     Route: 042
     Dates: start: 20080218, end: 20140121
  3. REMICADE [Suspect]
     Indication: RHEUMATIC DISORDER
     Dosage: THE PATIENT HAD APPROXIMATELY RECEIVED A TOTAL OF 38 INFLIXIMAB INFUSIONS.
     Route: 042
     Dates: start: 20080218, end: 20140121
  4. RAMIPRIL [Concomitant]
     Indication: HYPERTENSION
     Route: 065
  5. VERAPAMIL [Concomitant]
     Indication: HYPERTENSION
     Route: 065

REACTIONS (4)
  - Choroid plexus papilloma [Recovering/Resolving]
  - Wound infection staphylococcal [Recovered/Resolved]
  - Wound dehiscence [Recovering/Resolving]
  - Fistula [Recovering/Resolving]
